FAERS Safety Report 21039222 (Version 1)
Quarter: 2022Q3

REPORT INFORMATION
  Report Type: Spontaneous
  Country: CZ (occurrence: None)
  Receive Date: 20220704
  Receipt Date: 20220704
  Transmission Date: 20221027
  Serious: Yes (Hospitalization, Other)
  Sender: FDA-Public Use
  Company Number: 2022A239620

PATIENT
  Age: 14715 Day
  Sex: Female
  Weight: 65 kg

DRUGS (1)
  1. FASENRA [Suspect]
     Active Substance: BENRALIZUMAB
     Dosage: 1 STANDARD DOSE OF FASENRA; EVERY 8 WEEKS
     Route: 058

REACTIONS (4)
  - Dyspnoea [Recovered/Resolved with Sequelae]
  - Pulmonary granuloma [Unknown]
  - Pneumothorax spontaneous [Unknown]
  - COVID-19 [Unknown]

NARRATIVE: CASE EVENT DATE: 20210215
